FAERS Safety Report 9521210 (Version 1)
Quarter: 2013Q1

REPORT INFORMATION
  Report Type: Spontaneous
  Country: US (occurrence: None)
  Receive Date: 20130305
  Receipt Date: 20130305
  Transmission Date: 20140127
  Serious: Yes (Other)
  Sender: FDA-Public Use
  Company Number: 163-21880-12062399

PATIENT
  Age: 83 Year
  Sex: Male

DRUGS (1)
  1. REVLIMID [Suspect]
     Indication: PLASMA CELL MYELOMA
     Dosage: 15 MG, 1 IN 1 D, PO
     Route: 048
     Dates: start: 201110

REACTIONS (8)
  - Immune system disorder [None]
  - Hearing impaired [None]
  - Gingival bleeding [None]
  - Toothache [None]
  - White blood cell count decreased [None]
  - Neuropathy peripheral [None]
  - Pain in jaw [None]
  - Rash vesicular [None]
